FAERS Safety Report 8576655-7 (Version None)
Quarter: 2012Q3

REPORT INFORMATION
  Report Type: 
  Country: None (occurrence: None)
  Receive Date: 20120807
  Receipt Date: 20120717
  Transmission Date: 20120928
  Serious: No
  Sender: FDA-Public Use
  Company Number: US-ASTRAZENECA-2012SE49738

PATIENT
  Age: 46 Year
  Sex: Male
  Weight: 108.9 kg

DRUGS (1)
  1. NEXIUM [Suspect]
     Indication: GASTROOESOPHAGEAL REFLUX DISEASE
     Route: 048
     Dates: start: 20080101

REACTIONS (3)
  - HYPERTENSION [None]
  - FOOD INTERACTION [None]
  - BLOOD CHOLESTEROL INCREASED [None]
